FAERS Safety Report 4539840-7 (Version None)
Quarter: 2004Q4

REPORT INFORMATION
  Report Type: 
  Country: None (occurrence: None)
  Receive Date: 20041222
  Receipt Date: 20041203
  Transmission Date: 20050328
  Serious: Yes (Hospitalization)
  Sender: FDA-Public Use
  Company Number: USA041285218

PATIENT
  Age: 62 Year
  Sex: Male
  Weight: 95 kg

DRUGS (2)
  1. HUMALOG [Suspect]
     Dates: start: 20020101
  2. HUMULIN N [Suspect]
     Dosage: 25 U IN THE EVENING
     Dates: start: 20020101

REACTIONS (3)
  - BLOOD GLUCOSE INCREASED [None]
  - PHARMACEUTICAL PRODUCT COMPLAINT [None]
  - SKIN ULCER [None]
